FAERS Safety Report 15164028 (Version 1)
Quarter: 2018Q3

REPORT INFORMATION
  Report Type: Spontaneous
  Country: US (occurrence: US)
  Receive Date: 20180719
  Receipt Date: 20180719
  Transmission Date: 20181010
  Serious: No
  Sender: FDA-Public Use
  Company Number: US-WEST-WARD PHARMACEUTICALS CORP.-US-H14001-17-04278

PATIENT
  Age: 6 Month
  Sex: Male
  Weight: 9.08 kg

DRUGS (2)
  1. ZANTAC [Concomitant]
     Active Substance: RANITIDINE HYDROCHLORIDE
     Indication: PRODUCT USED FOR UNKNOWN INDICATION
     Route: 065
  2. AMOXICILLIN. [Suspect]
     Active Substance: AMOXICILLIN
     Indication: EAR INFECTION
     Route: 048
     Dates: start: 20171101

REACTIONS (2)
  - Mucous stools [Recovered/Resolved]
  - Flatulence [Recovered/Resolved]

NARRATIVE: CASE EVENT DATE: 20171101
